FAERS Safety Report 9804216 (Version 2)
Quarter: 2014Q1

REPORT INFORMATION
  Report Type: Report from Study
  Country: US (occurrence: US)
  Receive Date: 20140108
  Receipt Date: 20140129
  Transmission Date: 20141002
  Serious: Yes (Death)
  Sender: FDA-Public Use
  Company Number: US-ACTELION-A-US2013-93189

PATIENT
  Age: 47 Year
  Sex: Female

DRUGS (2)
  1. TRACLEER [Suspect]
     Indication: PORTAL HYPERTENSION
     Dosage: UNK
     Route: 048
     Dates: end: 20131216
  2. SILDENAFIL [Concomitant]

REACTIONS (1)
  - Death [Fatal]
